FAERS Safety Report 8523718-8 (Version None)
Quarter: 2012Q3

REPORT INFORMATION
  Report Type: 
  Country: None (occurrence: None)
  Receive Date: 20120720
  Receipt Date: 20120712
  Transmission Date: 20120928
  Serious: Yes (Hospitalization)
  Sender: FDA-Public Use
  Company Number: JP-JNJFOC-20120409847

PATIENT
  Age: 65 Year
  Sex: Female
  Weight: 38 kg

DRUGS (6)
  1. REMICADE [Suspect]
     Indication: RHEUMATOID ARTHRITIS
     Dosage: 47TH DOSE OF INFLIXIMAB
     Route: 042
     Dates: start: 20110108
  2. METHOTREXATE [Suspect]
     Route: 048
  3. METHOTREXATE [Suspect]
     Indication: RHEUMATOID ARTHRITIS
     Route: 048
  4. MEDROL [Suspect]
     Indication: PRODUCT USED FOR UNKNOWN INDICATION
     Route: 048
  5. REMICADE [Suspect]
     Route: 042
     Dates: start: 20040101
  6. PREDNISOLONE [Suspect]
     Indication: PRODUCT USED FOR UNKNOWN INDICATION
     Route: 048

REACTIONS (3)
  - DEVICE RELATED INFECTION [None]
  - WOUND INFECTION [None]
  - ARTHROPATHY [None]
